FAERS Safety Report 6750864-1 (Version None)
Quarter: 2010Q2

REPORT INFORMATION
  Report Type: 
  Country: None (occurrence: None)
  Receive Date: 20100602
  Receipt Date: 20100430
  Transmission Date: 20101027
  Serious: Yes (Hospitalization, Other)
  Sender: FDA-Public Use
  Company Number: US-BAYER-201014745NA

PATIENT
  Age: 41 Year
  Sex: Female
  Weight: 107 kg

DRUGS (8)
  1. YAZ [Suspect]
     Indication: MENORRHAGIA
     Route: 048
     Dates: start: 20070201, end: 20091101
  2. VITAMIN C [Concomitant]
     Route: 065
  3. ALEVE (CAPLET) [Concomitant]
     Route: 065
  4. ADVIL LIQUI-GELS [Concomitant]
     Route: 065
  5. TYLENOL W/ CODEINE NO. 3 [Concomitant]
     Route: 065
  6. CELEXA [Concomitant]
     Route: 065
  7. VITAMIN D [Concomitant]
     Route: 065
  8. COUMADIN [Concomitant]
     Route: 065

REACTIONS (6)
  - CHOLELITHIASIS [None]
  - DEEP VEIN THROMBOSIS [None]
  - DYSPNOEA [None]
  - PELVIC VENOUS THROMBOSIS [None]
  - PULMONARY EMBOLISM [None]
  - WOUND INFECTION STAPHYLOCOCCAL [None]
